FAERS Safety Report 18105864 (Version 4)
Quarter: 2020Q4

REPORT INFORMATION
  Report Type: Spontaneous
  Country: US (occurrence: US)
  Receive Date: 20200804
  Receipt Date: 20201007
  Transmission Date: 20210113
  Serious: Yes (Other)
  Sender: FDA-Public Use
  Company Number: US-AUROBINDO-AUR-APL-2020-037056

PATIENT
  Age: 79 Year
  Sex: Male

DRUGS (4)
  1. ALFUZOSIN HYDROCHLORIDE EXTENDED RELEASE [Suspect]
     Active Substance: ALFUZOSIN HYDROCHLORIDE
     Dosage: 15 MILLIGRAM
     Route: 065
  2. ALFUZOSIN HYDROCHLORIDE EXTENDED RELEASE [Suspect]
     Active Substance: ALFUZOSIN HYDROCHLORIDE
     Dosage: UNK
  3. ALFUZOSIN HYDROCHLORIDE EXTENDED RELEASE [Suspect]
     Active Substance: ALFUZOSIN HYDROCHLORIDE
     Dosage: 10 MILLIGRAM, ONCE A DAY (SINCE 08 YEARS)
     Route: 065
     Dates: start: 201212
  4. ALFUZOSIN HYDROCHLORIDE EXTENDED RELEASE [Suspect]
     Active Substance: ALFUZOSIN HYDROCHLORIDE
     Dosage: UNK
     Route: 065

REACTIONS (6)
  - Product quality issue [Unknown]
  - Drug ineffective [Unknown]
  - Manufacturing materials issue [Unknown]
  - Dysuria [Recovering/Resolving]
  - Urinary retention [Recovering/Resolving]
  - Incorrect dose administered [Unknown]
